FAERS Safety Report 18351372 (Version 2)
Quarter: 2020Q4

REPORT INFORMATION
  Report Type: Spontaneous
  Country: US (occurrence: US)
  Receive Date: 20201006
  Receipt Date: 20201204
  Transmission Date: 20210114
  Serious: No
  Sender: FDA-Public Use
  Company Number: US-ASTRAZENECA-2020SF25900

PATIENT
  Sex: Female
  Weight: 77.6 kg

DRUGS (7)
  1. BYDUREON BCISE [Suspect]
     Active Substance: EXENATIDE
     Indication: BLOOD GLUCOSE ABNORMAL
     Route: 065
     Dates: start: 2016
  2. ATORVASTATIN [Concomitant]
     Active Substance: ATORVASTATIN
     Indication: BLOOD CALCIUM ABNORMAL
     Route: 048
  3. LIDOCAINE. [Concomitant]
     Active Substance: LIDOCAINE
     Indication: NEUROPATHY PERIPHERAL
     Dosage: PATCH
  4. ASPIRIN. [Concomitant]
     Active Substance: ASPIRIN
  5. AZOR [Concomitant]
     Active Substance: AMLODIPINE BESYLATE\OLMESARTAN MEDOXOMIL
     Dosage: 10 TO 40 MG
  6. MONTELUKAST [Concomitant]
     Active Substance: MONTELUKAST SODIUM
     Dosage: 10.0MG UNKNOWN
  7. LEVMIR [Concomitant]
     Dosage: 50 UNITS, EVERY DAY

REACTIONS (5)
  - Wrong technique in device usage process [Unknown]
  - Needle issue [Unknown]
  - Device leakage [Unknown]
  - Musculoskeletal pain [Not Recovered/Not Resolved]
  - Product dose omission issue [Unknown]
